FAERS Safety Report 7403465-6 (Version None)
Quarter: 2011Q2

REPORT INFORMATION
  Report Type: 
  Country: None (occurrence: None)
  Receive Date: 20110408
  Receipt Date: 20110401
  Transmission Date: 20111010
  Serious: Yes (Hospitalization)
  Sender: FDA-Public Use
  Company Number: B0710227A

PATIENT
  Sex: Male

DRUGS (34)
  1. POSACONAZOLE [Suspect]
     Dosage: 200MG THREE TIMES PER DAY
     Route: 042
     Dates: start: 20101202, end: 20101206
  2. GENTAMICIN [Suspect]
     Dosage: 2UNIT THREE TIMES PER DAY
     Route: 048
     Dates: start: 20101126, end: 20101216
  3. SPIRIVA [Suspect]
     Dosage: 1PUFF PER DAY
     Route: 055
  4. NICOPATCH [Concomitant]
     Dosage: 21MG PER DAY
  5. CLAVENTIN [Suspect]
     Dosage: 1INJ THREE TIMES PER DAY
     Route: 042
     Dates: start: 20101207, end: 20101227
  6. ZAVEDOS [Suspect]
     Dosage: 12MG PER DAY
     Route: 042
     Dates: start: 20101126, end: 20101130
  7. NICORETTE [Suspect]
     Indication: NICOTINE DEPENDENCE
     Dosage: 10MG SIX TIMES PER DAY
     Route: 055
     Dates: start: 20101127, end: 20101212
  8. SERESTA [Concomitant]
     Route: 065
  9. CLOTTING FACTORS [Concomitant]
  10. ZOVIRAX [Suspect]
     Dosage: 500MG THREE TIMES PER DAY
     Route: 042
     Dates: start: 20101202, end: 20101210
  11. CIFLOX [Suspect]
     Dosage: 400MG TWICE PER DAY
     Route: 042
     Dates: start: 20101202, end: 20101207
  12. VFEND [Suspect]
     Indication: ASPERGILLOSIS
     Dosage: 400MG TWICE PER DAY
     Route: 042
     Dates: start: 20101206, end: 20101218
  13. TAZOCILLINE [Suspect]
     Dosage: 1INJ FOUR TIMES PER DAY
     Route: 042
     Dates: start: 20101126, end: 20101201
  14. DECTANCYL [Suspect]
     Indication: LEUKOCYTOSIS
     Dosage: 20MG PER DAY
     Route: 048
     Dates: start: 20101126, end: 20101129
  15. MOPRAL [Concomitant]
     Dosage: 20MG PER DAY
     Route: 065
     Dates: start: 20101126
  16. VANCOMYCINE [Suspect]
     Dosage: 1G TWICE PER DAY
     Route: 042
     Dates: start: 20101202, end: 20101207
  17. TARGOCID [Suspect]
     Dosage: 400MG TWICE PER DAY
     Route: 042
     Dates: start: 20101207, end: 20101227
  18. SYMBICORT [Suspect]
     Dosage: 1PUFF TWICE PER DAY
     Route: 055
     Dates: start: 20101202
  19. EMEND [Suspect]
     Dosage: 80MG PER DAY
     Route: 048
     Dates: start: 20101126, end: 20101206
  20. MORPHINE [Concomitant]
     Dosage: 20MG PER DAY
     Route: 042
     Dates: start: 20101202, end: 20101216
  21. TIENAM [Suspect]
     Dosage: 1G THREE TIMES PER DAY
     Route: 042
     Dates: start: 20101202, end: 20101208
  22. VESANOID [Suspect]
     Dosage: 90MG PER DAY
     Route: 048
     Dates: start: 20101126, end: 20101215
  23. RASBURICASE [Concomitant]
     Dosage: 18MG PER DAY
     Route: 042
     Dates: start: 20101126, end: 20101127
  24. ARACYTINE [Suspect]
     Dosage: 400MG PER DAY
     Route: 042
     Dates: start: 20101126, end: 20101202
  25. EFFEXOR [Concomitant]
     Dosage: 75MG IN THE MORNING
     Route: 065
  26. IDARAC [Concomitant]
     Dosage: 2TAB PER DAY
     Route: 048
     Dates: start: 20101210, end: 20101215
  27. ZOPHREN [Concomitant]
     Dosage: 8MG TWICE PER DAY
     Route: 065
     Dates: start: 20101126, end: 20101206
  28. SOLIAN [Concomitant]
     Dosage: 600MG AT NIGHT
     Route: 065
  29. IMODIUM [Concomitant]
     Dosage: 2CAP PER DAY
     Route: 048
     Dates: start: 20101126, end: 20101207
  30. NICOTINELL [Concomitant]
     Dates: start: 20101126, end: 20101207
  31. ATARAX [Concomitant]
     Dosage: 25MG TWICE PER DAY
     Route: 065
     Dates: start: 20101207, end: 20101221
  32. COLISTINE SULPHATE [Suspect]
     Dosage: 2UNIT THREE TIMES PER DAY
     Route: 048
     Dates: start: 20101126, end: 20101216
  33. BRICANYL [Concomitant]
     Route: 055
     Dates: start: 20101203, end: 20101223
  34. ATROVENT [Concomitant]
     Route: 055
     Dates: start: 20101203, end: 20101223

REACTIONS (2)
  - CONDITION AGGRAVATED [None]
  - NECROTISING ULCERATIVE GINGIVOSTOMATITIS [None]
